FAERS Safety Report 16908040 (Version 12)
Quarter: 2024Q3

REPORT INFORMATION
  Report Type: Report from Study
  Country: IL (occurrence: IL)
  Receive Date: 20191011
  Receipt Date: 20240826
  Transmission Date: 20241016
  Serious: Yes (Hospitalization, Other)
  Sender: ABBVIE
  Company Number: IL-ABBVIE-19K-082-2956727-00

PATIENT
  Age: 86 Year
  Sex: Female
  Weight: 60 kg

DRUGS (21)
  1. VENETOCLAX [Suspect]
     Active Substance: VENETOCLAX
     Indication: Chronic lymphocytic leukaemia
     Dosage: 20 MILLIGRAM
     Route: 048
     Dates: start: 20190513, end: 20190520
  2. VENETOCLAX [Suspect]
     Active Substance: VENETOCLAX
     Indication: Chronic lymphocytic leukaemia
     Dosage: 50 MILLIGRAM
     Route: 048
     Dates: start: 20190521, end: 20190528
  3. VENETOCLAX [Suspect]
     Active Substance: VENETOCLAX
     Indication: Chronic lymphocytic leukaemia
     Dosage: RAMP-UP
     Route: 048
     Dates: start: 20190529, end: 20190604
  4. VENETOCLAX [Suspect]
     Active Substance: VENETOCLAX
     Indication: Chronic lymphocytic leukaemia
     Dosage: RAMP-UP, LAST ADMIN DATE -  JUN 2019
     Route: 048
     Dates: start: 20190605
  5. VENETOCLAX [Suspect]
     Active Substance: VENETOCLAX
     Indication: Chronic lymphocytic leukaemia
     Route: 048
     Dates: start: 20190615, end: 20191111
  6. VENETOCLAX [Suspect]
     Active Substance: VENETOCLAX
     Indication: Chronic lymphocytic leukaemia
     Dosage: 100 MILLIGRAM
     Route: 048
     Dates: start: 20191213, end: 20210712
  7. VENETOCLAX [Suspect]
     Active Substance: VENETOCLAX
     Indication: Chronic lymphocytic leukaemia
     Dosage: 20 MILLIGRAM,?DURATION TEXT: RAMP-UP
     Route: 048
     Dates: start: 20220116, end: 20220122
  8. VENETOCLAX [Suspect]
     Active Substance: VENETOCLAX
     Indication: Chronic lymphocytic leukaemia
     Dosage: 50 MILLIGRAM,?DURATION TEXT: RAMP-UP
     Route: 048
     Dates: start: 20220123, end: 20220205
  9. VENETOCLAX [Suspect]
     Active Substance: VENETOCLAX
     Indication: Chronic lymphocytic leukaemia
     Dosage: 100 MILLIGRAM
     Route: 048
     Dates: start: 20220206, end: 20220430
  10. ELIQUIS [Concomitant]
     Active Substance: APIXABAN
     Indication: Anticoagulant therapy
     Route: 065
     Dates: start: 20190815
  11. LOSARTAN [Concomitant]
     Active Substance: LOSARTAN\LOSARTAN POTASSIUM
     Indication: Hypertension
     Dates: start: 20160905
  12. ESCITALOPRAM [Concomitant]
     Active Substance: ESCITALOPRAM OXALATE
     Indication: Depression
     Dates: start: 20150218
  13. Fusid [Concomitant]
     Indication: Hypertension
     Dates: start: 20100610
  14. NEXIUM [Concomitant]
     Active Substance: ESOMEPRAZOLE MAGNESIUM
     Indication: Prophylaxis
     Dates: start: 20180828
  15. ALENDRONATE SODIUM [Concomitant]
     Active Substance: ALENDRONATE SODIUM
     Indication: Osteoporosis
     Dates: start: 20120515
  16. ALLOPURINOL [Concomitant]
     Active Substance: ALLOPURINOL
     Indication: Prophylaxis
     Dates: start: 20190515
  17. PFIZER-BIONTECH COVID-19 VACCINE [Concomitant]
     Active Substance: TOZINAMERAN
     Indication: COVID-19 prophylaxis
     Dosage: TIME INTERVAL: TOTAL: ONCE
     Route: 030
     Dates: start: 20210101, end: 20210101
  18. PFIZER-BIONTECH COVID-19 VACCINE [Concomitant]
     Active Substance: TOZINAMERAN
     Indication: COVID-19 prophylaxis
     Dosage: TIME INTERVAL: TOTAL: ONCE
     Route: 030
     Dates: start: 20210122, end: 20210122
  19. INFLUVAC TETRA [Concomitant]
     Active Substance: INFLUENZA VIRUS VACCINE QUADRIVALENT TYPE A+B
     Indication: Antiviral prophylaxis
     Dosage: INFLUVAC TETRA VACCINE
     Dates: start: 20200924, end: 20200924
  20. FLUARIX NOS [Concomitant]
     Active Substance: INFLUENZA VIRUS VACCINE
     Indication: Antiviral prophylaxis
     Dosage: FLUARIX VACCINE
     Dates: start: 20191111, end: 20191111
  21. Immunoglobulin [Concomitant]
     Indication: Prophylaxis
     Route: 042
     Dates: start: 20181108

REACTIONS (13)
  - Femur fracture [Recovered/Resolved]
  - Hypersensitivity pneumonitis [Not Recovered/Not Resolved]
  - Chronic lymphocytic leukaemia [Unknown]
  - Hip fracture [Recovered/Resolved]
  - Disease progression [Unknown]
  - Fall [Recovered/Resolved]
  - Oedema peripheral [Not Recovered/Not Resolved]
  - Herpes zoster [Recovered/Resolved]
  - Chest pain [Recovered/Resolved]
  - Stasis dermatitis [Not Recovered/Not Resolved]
  - Dermal cyst [Recovered/Resolved]
  - Anaemia [Recovered/Resolved]
  - Neuropathy peripheral [Recovered/Resolved]

NARRATIVE: CASE EVENT DATE: 20190729
